FAERS Safety Report 22013819 (Version 1)
Quarter: 2023Q1

REPORT INFORMATION
  Report Type: Other
  Country: None (occurrence: US)
  Receive Date: 20230221
  Receipt Date: 20230221
  Transmission Date: 20230418
  Serious: Yes (Other)
  Sender: FDA-Public Use
  Company Number: US-P+L Developments of Newyork Corporation-2138223

PATIENT
  Age: 70 Year
  Sex: Female

DRUGS (4)
  1. FAMOTIDINE [Suspect]
     Active Substance: FAMOTIDINE
     Indication: Urticaria chronic
     Route: 065
  2. FEXOFENADINE [Suspect]
     Active Substance: FEXOFENADINE HYDROCHLORIDE
     Route: 065
  3. CETIRIZINE [Suspect]
     Active Substance: CETIRIZINE HYDROCHLORIDE
     Route: 065
  4. EPIPEN [Suspect]
     Active Substance: EPINEPHRINE
     Route: 065

REACTIONS (1)
  - Drug ineffective for unapproved indication [Unknown]
